FAERS Safety Report 9861894 (Version 1)
Quarter: 2014Q1

REPORT INFORMATION
  Report Type: Spontaneous
  Country: CO (occurrence: CO)
  Receive Date: 20140203
  Receipt Date: 20140203
  Transmission Date: 20141002
  Serious: Yes (Death)
  Sender: FDA-Public Use
  Company Number: CO-JNJFOC-20140200087

PATIENT
  Age: 77 Year
  Sex: Female

DRUGS (1)
  1. REMINYL [Suspect]
     Indication: AMNESIA
     Route: 048
     Dates: start: 20120918, end: 20130608

REACTIONS (1)
  - Death [Fatal]
